FAERS Safety Report 16873844 (Version 1)
Quarter: 2019Q4

REPORT INFORMATION
  Report Type: Spontaneous
  Country: US (occurrence: US)
  Receive Date: 20191001
  Receipt Date: 20191001
  Transmission Date: 20200122
  Serious: Yes (Hospitalization)
  Sender: FDA-Public Use
  Company Number: US-ASTRAZENECA-2019SF37915

PATIENT
  Age: 457 Day
  Sex: Female
  Weight: 8.2 kg

DRUGS (10)
  1. DIURIL [Concomitant]
     Active Substance: CHLOROTHIAZIDE
  2. VITAMIN D [Concomitant]
     Active Substance: VITAMIN D NOS
  3. FUROSEMIDE. [Concomitant]
     Active Substance: FUROSEMIDE
  4. ALBUTEROL. [Concomitant]
     Active Substance: ALBUTEROL
  5. PREDNISONE. [Concomitant]
     Active Substance: PREDNISONE
  6. SYNAGIS [Suspect]
     Active Substance: PALIVIZUMAB
     Indication: PROPHYLAXIS
     Route: 030
     Dates: start: 201902
  7. AMOXICILLIN. [Concomitant]
     Active Substance: AMOXICILLIN
  8. MULTIVITAMIN [Concomitant]
     Active Substance: VITAMINS
  9. ASCORBIC ACID. [Concomitant]
     Active Substance: ASCORBIC ACID
  10. POTASSIUM CH [Concomitant]

REACTIONS (1)
  - Pyrexia [Unknown]

NARRATIVE: CASE EVENT DATE: 20190922
